FAERS Safety Report 8421062-0 (Version None)
Quarter: 2012Q2

REPORT INFORMATION
  Report Type: 
  Country: None (occurrence: None)
  Receive Date: 20120608
  Receipt Date: 20120604
  Transmission Date: 20120825
  Serious: Yes (Hospitalization, Other)
  Sender: FDA-Public Use
  Company Number: TW-US-EMD SERONO, INC.-7135454

PATIENT
  Age: 31 Year
  Sex: Female

DRUGS (1)
  1. CLOMIPHENE CITRATE [Suspect]
     Indication: OVULATION INDUCTION
     Route: 048

REACTIONS (2)
  - OVARIAN TORSION [None]
  - OVARIAN HYPERSTIMULATION SYNDROME [None]
